FAERS Safety Report 8097581-6 (Version None)
Quarter: 2012Q1

REPORT INFORMATION
  Report Type: 
  Country: None (occurrence: None)
  Receive Date: 20120128
  Receipt Date: 20110726
  Transmission Date: 20120608
  Serious: Yes (Other)
  Sender: FDA-Public Use
  Company Number: US-ABBOTT-10P-163-0656232-00

PATIENT
  Sex: Male
  Weight: 90.8 kg

DRUGS (2)
  1. HUMIRA [Suspect]
     Indication: RHEUMATOID ARTHRITIS
     Dates: start: 20011120
  2. HUMIRA [Suspect]
     Indication: SEROLOGY POSITIVE
     Dates: start: 20070227, end: 20070725

REACTIONS (1)
  - BLADDER CANCER RECURRENT [None]
